FAERS Safety Report 7033365-5 (Version None)
Quarter: 2010Q4

REPORT INFORMATION
  Report Type: 
  Country: None (occurrence: None)
  Receive Date: 20101004
  Receipt Date: 20100922
  Transmission Date: 20110411
  Serious: Yes (Hospitalization)
  Sender: FDA-Public Use
  Company Number: 016532

PATIENT
  Sex: Female
  Weight: 62.6 kg

DRUGS (3)
  1. CIMZIA [Suspect]
     Indication: CROHN'S DISEASE
     Dosage: 400 MG 1X/4 WEEKS SUBCUTANEOUS
     Route: 058
     Dates: start: 20091216, end: 20100201
  2. ENTOCORT (NOT SPECIFIED) [Suspect]
     Indication: CROHN'S DISEASE
     Dosage: 9 MG QD
     Dates: start: 20091216, end: 20100201
  3. PENTASA [Concomitant]

REACTIONS (2)
  - IMPAIRED HEALING [None]
  - POSTOPERATIVE WOUND INFECTION [None]
